FAERS Safety Report 9378631 (Version 4)
Quarter: 2013Q3

REPORT INFORMATION
  Report Type: Report from Study
  Country: CO (occurrence: CO)
  Receive Date: 20130702
  Receipt Date: 20130917
  Transmission Date: 20140515
  Serious: Yes (Disabling, Other)
  Sender: FDA-Public Use
  Company Number: CO-ROCHE-1243507

PATIENT
  Sex: Male

DRUGS (4)
  1. RANIBIZUMAB [Suspect]
     Indication: VISION BLURRED
     Route: 050
     Dates: start: 20121216
  2. RANIBIZUMAB [Suspect]
     Indication: CEREBROVASCULAR ACCIDENT
  3. RANIBIZUMAB [Suspect]
     Indication: MACULAR DEGENERATION
  4. TRAZODONE [Concomitant]

REACTIONS (1)
  - Blindness [Not Recovered/Not Resolved]
